FAERS Safety Report 4698593-2 (Version None)
Quarter: 2005Q2

REPORT INFORMATION
  Report Type: 
  Country: None (occurrence: None)
  Receive Date: 20050623
  Receipt Date: 20040521
  Transmission Date: 20051028
  Serious: Yes (Hospitalization)
  Sender: FDA-Public Use
  Company Number: NUBN20040009

PATIENT
  Age: 49 Year
  Sex: Male

DRUGS (7)
  1. NUBAIN [Suspect]
     Indication: PAIN
     Dosage: 10 MG ONCE IM
     Route: 030
     Dates: start: 20040105, end: 20040105
  2. MST (MORPHINE SULPHATE   UNK  UNKNOWN [Suspect]
     Indication: PAIN
     Dosage: 360 MG BID PO
     Route: 048
     Dates: start: 20030901, end: 20040101
  3. IBUPROFEN [Concomitant]
  4. STILBOESTROL (DIETHYLSTIBESTROL) [Concomitant]
  5. CYCLIZINE [Concomitant]
  6. ASPIRIN [Concomitant]
  7. CO-DANTHRAMER [Concomitant]

REACTIONS (3)
  - ANAPHYLACTIC REACTION [None]
  - DRUG INTERACTION [None]
  - DRUG WITHDRAWAL SYNDROME [None]
